FAERS Safety Report 7441641-7 (Version None)
Quarter: 2011Q2

REPORT INFORMATION
  Report Type: 
  Country: None (occurrence: None)
  Receive Date: 20110428
  Receipt Date: 20110420
  Transmission Date: 20111010
  Serious: Yes (Hospitalization)
  Sender: FDA-Public Use
  Company Number: US-AMGEN-USASP2011020660

PATIENT
  Sex: Male

DRUGS (10)
  1. CYTARABINE [Concomitant]
     Dosage: 5.97 G, UNK
     Route: 042
     Dates: start: 20110328
  2. LEUCOVORIN CALCIUM [Concomitant]
     Dosage: UNK
     Dates: start: 20110328
  3. CIPRO [Concomitant]
  4. FLUCONAZOLE [Concomitant]
  5. RITUXIMAB [Concomitant]
     Dosage: 746 MG, Q3WK
     Route: 042
     Dates: start: 20110328
  6. METHOTREXATE [Concomitant]
     Dosage: 398 MG, Q3WK
     Route: 042
     Dates: start: 20110328
  7. ZOCOR [Concomitant]
  8. VALTREX [Concomitant]
  9. FILGRASTIM [Suspect]
     Indication: NON-HODGKIN'S LYMPHOMA
     Dosage: 480 A?G, Q3WK
  10. RITALIN [Concomitant]

REACTIONS (1)
  - FEBRILE NEUTROPENIA [None]
